FAERS Safety Report 16453204 (Version 4)
Quarter: 2019Q3

REPORT INFORMATION
  Report Type: Spontaneous
  Country: US (occurrence: US)
  Receive Date: 20190619
  Receipt Date: 20190916
  Transmission Date: 20191004
  Serious: No
  Sender: FDA-Public Use
  Company Number: US-SA-2019SA162455

PATIENT
  Sex: Male

DRUGS (4)
  1. PRALUENT [Suspect]
     Active Substance: ALIROCUMAB
     Dosage: UNK, UNK
     Dates: start: 2016
  2. PRALUENT [Suspect]
     Active Substance: ALIROCUMAB
     Dosage: UNK
  3. ROSUVASTATIN CALCIUM. [Suspect]
     Active Substance: ROSUVASTATIN CALCIUM
     Dosage: UNK, UNK
  4. NIACIN. [Suspect]
     Active Substance: NIACIN
     Dosage: UNK, UNK

REACTIONS (3)
  - Myalgia [Recovered/Resolved]
  - Paraesthesia [Recovered/Resolved]
  - Product dose omission [Recovered/Resolved]
